FAERS Safety Report 5210284-8 (Version None)
Quarter: 2007Q1

REPORT INFORMATION
  Report Type: 
  Country: None (occurrence: None)
  Receive Date: 20070111
  Receipt Date: 20070103
  Transmission Date: 20070707
  Serious: Yes (Hospitalization, Other)
  Sender: FDA-Public Use
  Company Number: ITWYE954627DEC06

PATIENT
  Age: 38 Year
  Sex: Female

DRUGS (4)
  1. MERCAPTOPURINE [Suspect]
     Indication: ACUTE PROMYELOCYTIC LEUKAEMIA
     Dosage: 50 MG/M^2 1X PER 1 DAY
     Dates: start: 20051028, end: 20051028
  2. MERCAPTOPURINE [Suspect]
     Indication: ACUTE PROMYELOCYTIC LEUKAEMIA
     Dosage: 50 MG/M^2 1X PER 1 DAY
     Dates: start: 20051030
  3. METHOTREXATE [Suspect]
     Indication: ACUTE PROMYELOCYTIC LEUKAEMIA
     Dosage: 15 MG/M^2 1X PER 1 WK
     Dates: start: 20051028
  4. DELORAZEPAM (DELORAZEPAM) [Concomitant]

REACTIONS (3)
  - ABDOMINAL PAIN UPPER [None]
  - HEMIPARESIS [None]
  - HYPOKALAEMIA [None]
